FAERS Safety Report 19273569 (Version 1)
Quarter: 2021Q2

REPORT INFORMATION
  Report Type: Spontaneous
  Country: GB (occurrence: GB)
  Receive Date: 20210519
  Receipt Date: 20210519
  Transmission Date: 20210717
  Serious: Yes (Life-Threatening, Hospitalization, Other)
  Sender: FDA-Public Use
  Company Number: GB-NEBO-PC006877

PATIENT
  Sex: Male

DRUGS (1)
  1. MONOFER [Suspect]
     Active Substance: IRON ISOMALTOSIDE 1000
     Indication: ANAEMIA
     Route: 042
     Dates: start: 20210512

REACTIONS (3)
  - Respiratory arrest [Recovered/Resolved]
  - Cardiac arrest [Recovered/Resolved]
  - Syncope [Recovering/Resolving]

NARRATIVE: CASE EVENT DATE: 20210512
